FAERS Safety Report 6918643-X (Version None)
Quarter: 2010Q3

REPORT INFORMATION
  Report Type: 
  Country: None (occurrence: None)
  Receive Date: 20100811
  Receipt Date: 20100730
  Transmission Date: 20110219
  Serious: Yes (Other)
  Sender: FDA-Public Use
  Company Number: US-PFIZER INC-2010096790

PATIENT
  Age: 83 Year
  Sex: Female

DRUGS (4)
  1. AROMASIN [Suspect]
     Indication: BREAST CANCER
     Dosage: 25 MG, 1X/DAY
     Dates: start: 20100701
  2. FEMARA [Suspect]
     Indication: BREAST CANCER
  3. CRESTOR [Concomitant]
  4. VITAMIN TAB [Concomitant]

REACTIONS (5)
  - ABDOMINAL DISCOMFORT [None]
  - ANXIETY [None]
  - CHEST DISCOMFORT [None]
  - FATIGUE [None]
  - INSOMNIA [None]
